FAERS Safety Report 7103201-7 (Version None)
Quarter: 2010Q4

REPORT INFORMATION
  Report Type: 
  Country: None (occurrence: None)
  Receive Date: 20101115
  Receipt Date: 20090402
  Transmission Date: 20110411
  Serious: No
  Sender: FDA-Public Use
  Company Number: US-KINGPHARMUSA00001-K200900366

PATIENT
  Sex: Male
  Weight: 155 kg

DRUGS (2)
  1. AVINZA [Suspect]
     Indication: BACK PAIN
     Dosage: 120 MG, QD
     Route: 048
     Dates: start: 20090301, end: 20090301
  2. MUSCLE RELAXANTS [Concomitant]
     Indication: MUSCLE RELAXANT THERAPY
     Dosage: UNK

REACTIONS (1)
  - BREAKTHROUGH PAIN [None]
